FAERS Safety Report 21642699 (Version 1)
Quarter: 2022Q4

REPORT INFORMATION
  Report Type: Spontaneous
  Country: US (occurrence: None)
  Receive Date: 20221125
  Receipt Date: 20221125
  Transmission Date: 20230113
  Serious: No
  Sender: FDA-Public Use
  Company Number: 2022A358436

PATIENT
  Age: 26729 Day
  Sex: Female
  Weight: 79.4 kg

DRUGS (3)
  1. SYMBICORT [Suspect]
     Active Substance: BUDESONIDE\FORMOTEROL FUMARATE DIHYDRATE
     Indication: COVID-19
     Dosage: 80MCG/4.5MCG
     Route: 055
     Dates: start: 20221025
  2. SYMBICORT [Suspect]
     Active Substance: BUDESONIDE\FORMOTEROL FUMARATE DIHYDRATE
     Indication: Cough
     Dosage: 80MCG/4.5MCG
     Route: 055
     Dates: start: 20221025
  3. SYMBICORT [Suspect]
     Active Substance: BUDESONIDE\FORMOTEROL FUMARATE DIHYDRATE
     Indication: Malaise
     Dosage: 80MCG/4.5MCG
     Route: 055
     Dates: start: 20221025

REACTIONS (6)
  - COVID-19 [Unknown]
  - Cough [Unknown]
  - Malaise [Unknown]
  - Product physical issue [Unknown]
  - Drug ineffective [Unknown]
  - Device use issue [Unknown]

NARRATIVE: CASE EVENT DATE: 20221025
